FAERS Safety Report 5764941-5 (Version None)
Quarter: 2008Q2

REPORT INFORMATION
  Report Type: 
  Country: None (occurrence: None)
  Receive Date: 20080611
  Receipt Date: 20080606
  Transmission Date: 20081010
  Serious: Yes (Life-Threatening)
  Sender: FDA-Public Use
  Company Number: B0485678A

PATIENT
  Age: 53 Year
  Sex: Male

DRUGS (12)
  1. PAXIL [Suspect]
     Indication: DYSTHYMIC DISORDER
     Route: 048
     Dates: start: 20070205
  2. MEILAX [Concomitant]
     Indication: DYSTHYMIC DISORDER
     Dosage: 1MG PER DAY
     Route: 048
     Dates: start: 20070205
  3. TRICOR [Concomitant]
     Indication: DYSTHYMIC DISORDER
     Dosage: 200MG PER DAY
     Route: 048
     Dates: start: 20070205
  4. ABILIT [Concomitant]
     Indication: DYSTHYMIC DISORDER
     Dosage: 100MG PER DAY
     Route: 048
     Dates: start: 20070205
  5. ALLOPURINOL [Concomitant]
     Dosage: 100MG TWICE PER DAY
     Route: 048
     Dates: start: 20070205
  6. TALION [Concomitant]
     Dosage: 10MG TWICE PER DAY
     Route: 048
     Dates: start: 20070407
  7. LOXONIN [Concomitant]
     Indication: UPPER RESPIRATORY TRACT INFLAMMATION
     Dosage: 180MG PER DAY
     Route: 048
     Dates: start: 20070223, end: 20070228
  8. TRANSAMIN [Concomitant]
     Indication: UPPER RESPIRATORY TRACT INFLAMMATION
     Dosage: 1500MG PER DAY
     Route: 048
     Dates: start: 20070223, end: 20070228
  9. ALLEGRA [Concomitant]
     Dosage: 180MG PER DAY
     Route: 048
     Dates: start: 20070223, end: 20070228
  10. CHINESE MEDICINE [Concomitant]
     Dosage: 7.5G PER DAY
     Route: 048
     Dates: start: 20070223, end: 20070228
  11. ALCOHOL [Concomitant]
     Route: 065
  12. ABILIT [Concomitant]
     Dosage: 150MG PER DAY
     Route: 048
     Dates: start: 20070407

REACTIONS (2)
  - IDIOSYNCRATIC ALCOHOL INTOXICATION [None]
  - ROAD TRAFFIC ACCIDENT [None]
